FAERS Safety Report 10542582 (Version 1)
Quarter: 2014Q4

REPORT INFORMATION
  Report Type: Spontaneous
  Country: US (occurrence: None)
  Receive Date: 20141023
  Receipt Date: 20141023
  Transmission Date: 20150529
  Serious: No
  Sender: FDA-Public Use
  Company Number: None

PATIENT
  Age: 45 Year
  Sex: Male

DRUGS (5)
  1. VELCADE [Suspect]
     Active Substance: BORTEZOMIB
     Indication: PLASMA CELL MYELOMA
     Route: 042
     Dates: start: 20100601, end: 20110501
  2. DEX [Concomitant]
     Active Substance: DEXAMETHASONE
  3. VELCADE [Concomitant]
     Active Substance: BORTEZOMIB
  4. AUTO SCT [Concomitant]
  5. REVLIMID [Concomitant]
     Active Substance: LENALIDOMIDE

REACTIONS (2)
  - Pain [None]
  - Neuropathy peripheral [None]

NARRATIVE: CASE EVENT DATE: 20110501
